FAERS Safety Report 5110864-4 (Version None)
Quarter: 2006Q3

REPORT INFORMATION
  Report Type: 
  Country: None (occurrence: None)
  Receive Date: 20060919
  Receipt Date: 20060913
  Transmission Date: 20061208
  Serious: Yes (Life-Threatening)
  Sender: FDA-Public Use
  Company Number: 2006P1000441

PATIENT
  Age: 53 Year
  Sex: Male
  Weight: 67 kg

DRUGS (5)
  1. RETEPLASE (RETEPLASE) [Suspect]
     Indication: MYOCARDIAL INFARCTION
     Dosage: IV
     Route: 042
     Dates: start: 20060904
  2. REOPRO [Suspect]
     Indication: MYOCARDIAL INFARCTION
     Dosage: IV
     Route: 042
     Dates: start: 20060904
  3. ASPIRIN [Concomitant]
  4. HEPARIN [Concomitant]
  5. GLYCERYL TRINITRATE [Concomitant]

REACTIONS (2)
  - BLOOD FIBRINOGEN INCREASED [None]
  - HAEMORRHAGIC STROKE [None]
